FAERS Safety Report 20978799 (Version 1)
Quarter: 2022Q2

REPORT INFORMATION
  Report Type: Spontaneous
  Country: FI (occurrence: FI)
  Receive Date: 20220619
  Receipt Date: 20220619
  Transmission Date: 20220721
  Serious: Yes (Life-Threatening)
  Sender: FDA-Public Use
  Company Number: None

PATIENT
  Age: 58 Year
  Sex: Female

DRUGS (2)
  1. ATORVASTATIN [Suspect]
     Active Substance: ATORVASTATIN
     Indication: Hypercholesterolaemia
     Dosage: DURATION : 5 MONTHS
     Route: 048
     Dates: start: 202111, end: 20220410
  2. CLOPIDOGREL KRKA [Concomitant]
     Dosage: 75 MILLIGRAM DAILY;
     Route: 048
     Dates: start: 20220318

REACTIONS (10)
  - Tremor [Unknown]
  - Hyperhidrosis [Unknown]
  - Palpitations [Unknown]
  - Arrhythmia [Unknown]
  - Malaise [Unknown]
  - Tinnitus [Unknown]
  - Muscular weakness [Unknown]
  - Extrasystoles [Unknown]
  - Insomnia [Unknown]
  - Blood pressure increased [Unknown]

NARRATIVE: CASE EVENT DATE: 20211201
